FAERS Safety Report 5939612-2 (Version None)
Quarter: 2008Q4

REPORT INFORMATION
  Report Type: 
  Country: None (occurrence: None)
  Receive Date: 20081030
  Receipt Date: 20081030
  Transmission Date: 20090506
  Serious: Yes (Hospitalization)
  Sender: FDA-Public Use
  Company Number: None

PATIENT
  Age: 48 Year
  Sex: Female
  Weight: 60.782 kg

DRUGS (1)
  1. CARIMUNE [Suspect]
     Indication: HYPOGAMMAGLOBULINAEMIA
     Dosage: 18 G Q 2 WEEKS IV
     Route: 042
     Dates: start: 20080124, end: 20081028

REACTIONS (7)
  - DYSKINESIA [None]
  - DYSTONIA [None]
  - MUSCLE RIGIDITY [None]
  - MUSCLE TIGHTNESS [None]
  - NYSTAGMUS [None]
  - SKIN DISCOLOURATION [None]
  - TREMOR [None]
